FAERS Safety Report 11185741 (Version 1)
Quarter: 2015Q2

REPORT INFORMATION
  Report Type: Spontaneous
  Country: CN (occurrence: CN)
  Receive Date: 20150612
  Receipt Date: 20150612
  Transmission Date: 20150821
  Serious: Yes (Hospitalization, Other)
  Sender: FDA-Public Use
  Company Number: CN-GLAXOSMITHKLINE-CN2015GSK078721

PATIENT
  Age: 8 Year
  Sex: Male

DRUGS (5)
  1. OXCARBAZEPINE. [Suspect]
     Active Substance: OXCARBAZEPINE
     Indication: EPILEPSY
     Dosage: UNK
     Route: 048
  2. VALPROATE SODIUM. [Suspect]
     Active Substance: VALPROATE SODIUM
     Indication: EPILEPSY
     Dosage: UNK
     Route: 048
  3. CLONAZEPAM. [Suspect]
     Active Substance: CLONAZEPAM
     Indication: SEIZURE
     Dosage: 0.25 MG, UNK (MORNING)
     Route: 065
  4. CLONAZEPAM. [Suspect]
     Active Substance: CLONAZEPAM
     Dosage: 0.125 MG, UNK (EVENING)
     Route: 065
  5. LAMOTRIGINE. [Suspect]
     Active Substance: LAMOTRIGINE
     Indication: EPILEPSY
     Dosage: UNK
     Route: 048

REACTIONS (20)
  - Abasia [Recovered/Resolved]
  - Wheezing [Not Recovered/Not Resolved]
  - Cyanosis [Recovered/Resolved]
  - Muscular weakness [Recovering/Resolving]
  - Exercise tolerance decreased [Unknown]
  - Drug reaction with eosinophilia and systemic symptoms [Unknown]
  - Bronchopneumonia [Unknown]
  - Ulcer [Unknown]
  - Depression [Unknown]
  - Obliterative bronchiolitis [Unknown]
  - Oral disorder [Recovered/Resolved]
  - Pruritus [Unknown]
  - Rash [Unknown]
  - Mosaicism [Unknown]
  - Conjunctival hyperaemia [Unknown]
  - Pyrexia [Unknown]
  - Wheezing [Unknown]
  - Pneumonia [Unknown]
  - Eye swelling [Recovering/Resolving]
  - Nasal flaring [Unknown]
